FAERS Safety Report 18180509 (Version 2)
Quarter: 2020Q3

REPORT INFORMATION
  Report Type: Spontaneous
  Country: US (occurrence: US)
  Receive Date: 20200821
  Receipt Date: 20200821
  Transmission Date: 20201103
  Serious: No
  Sender: FDA-Public Use
  Company Number: US-SA-2020SA214078

PATIENT

DRUGS (2)
  1. TOUJEO [Suspect]
     Active Substance: INSULIN GLARGINE
     Indication: DIABETES MELLITUS
     Dosage: 52 IU, QD
     Route: 065
  2. NOVOLOG [Concomitant]
     Active Substance: INSULIN ASPART
     Dosage: UNKNOWN
     Route: 065

REACTIONS (2)
  - Circumstance or information capable of leading to medication error [Unknown]
  - Blood glucose fluctuation [Unknown]
